FAERS Safety Report 7302726-9 (Version None)
Quarter: 2011Q1

REPORT INFORMATION
  Report Type: 
  Country: None (occurrence: None)
  Receive Date: 20110218
  Receipt Date: 20110215
  Transmission Date: 20110831
  Serious: Yes (Other)
  Sender: FDA-Public Use
  Company Number: GB-PFIZER INC-2010155624

PATIENT
  Age: 21 Year
  Sex: Female

DRUGS (5)
  1. AMITRIPTYLINE [Suspect]
     Dosage: 12-15 TABLETS
     Route: 048
     Dates: start: 20101122, end: 20101122
  2. CHAMPIX [Suspect]
     Indication: SMOKING CESSATION THERAPY
     Dosage: 1 MG, 2X/DAY
     Dates: start: 20101029, end: 20101122
  3. HEROIN [Concomitant]
  4. METHADONE [Concomitant]
  5. MIRTAZAPINE [Concomitant]
     Dosage: 30 MG, 1X/DAY
     Route: 048
     Dates: start: 20100501

REACTIONS (6)
  - ANXIETY [None]
  - DEPRESSED MOOD [None]
  - VOMITING [None]
  - EMOTIONAL DISORDER [None]
  - INTENTIONAL SELF-INJURY [None]
  - OVERDOSE [None]
